FAERS Safety Report 5096780-5 (Version None)
Quarter: 2006Q3

REPORT INFORMATION
  Report Type: 
  Country: None (occurrence: None)
  Receive Date: 20060831
  Receipt Date: 20060818
  Transmission Date: 20061208
  Serious: Yes (Hospitalization)
  Sender: FDA-Public Use
  Company Number: 2006103409

PATIENT
  Age: 62 Year
  Sex: Male
  Weight: 77 kg

DRUGS (1)
  1. SUTENT [Suspect]
     Indication: RENAL CELL CARCINOMA STAGE UNSPECIFIED
     Dosage: 50 MG (50 MG, 1 IN 1 D), ORAL
     Route: 048
     Dates: start: 20060710

REACTIONS (6)
  - ANAEMIA [None]
  - BLOOD POTASSIUM INCREASED [None]
  - COLD SWEAT [None]
  - HYPERCALCAEMIA [None]
  - HYPERSOMNIA [None]
  - PALLOR [None]
